FAERS Safety Report 14596728 (Version 1)
Quarter: 2018Q1

REPORT INFORMATION
  Report Type: Spontaneous
  Country: US (occurrence: US)
  Receive Date: 20180304
  Receipt Date: 20180304
  Transmission Date: 20180509
  Serious: Yes (Other)
  Sender: FDA-Public Use
  Company Number: US-AMGEN-USASP2018026742

PATIENT
  Age: 85 Year
  Sex: Male

DRUGS (2)
  1. PROLIA [Suspect]
     Active Substance: DENOSUMAB
     Indication: RHEUMATOID ARTHRITIS
  2. PROLIA [Suspect]
     Active Substance: DENOSUMAB
     Indication: OSTEOPOROSIS
     Dosage: UNK
     Route: 065
     Dates: start: 20180213

REACTIONS (8)
  - Groin pain [Unknown]
  - Muscle spasms [Unknown]
  - Mobility decreased [Unknown]
  - Scrotal cyst [Unknown]
  - Gait disturbance [Recovering/Resolving]
  - Pain [Unknown]
  - Intervertebral disc disorder [Unknown]
  - Back pain [Unknown]

NARRATIVE: CASE EVENT DATE: 201802
